FAERS Safety Report 5095700-7 (Version None)
Quarter: 2006Q3

REPORT INFORMATION
  Report Type: 
  Country: None (occurrence: None)
  Receive Date: 20060731
  Receipt Date: 20060427
  Transmission Date: 20061208
  Serious: No
  Sender: FDA-Public Use
  Company Number: 2006PV012830

PATIENT
  Age: 50 Year
  Sex: Female
  Weight: 66.2252 kg

DRUGS (7)
  1. BYETTA [Suspect]
     Indication: DIABETES MELLITUS NON-INSULIN-DEPENDENT
     Dosage: 10 MCG; BID; SC, SEE IMAGE
     Route: 058
     Dates: start: 20051001, end: 20051101
  2. BYETTA [Suspect]
     Indication: DIABETES MELLITUS NON-INSULIN-DEPENDENT
     Dosage: 10 MCG; BID; SC, SEE IMAGE
     Route: 058
     Dates: start: 20051101
  3. METFORMIN HCL [Concomitant]
  4. AVALIDE [Concomitant]
  5. VYTORIN [Concomitant]
  6. TRICOR [Concomitant]
  7. TRIGLYCERIDE MEDICATION [Concomitant]

REACTIONS (10)
  - BLOOD CHOLESTEROL DECREASED [None]
  - BLOOD GLUCOSE INCREASED [None]
  - BLOOD PRESSURE DECREASED [None]
  - HEART RATE DECREASED [None]
  - NAUSEA [None]
  - PHARYNGITIS STREPTOCOCCAL [None]
  - PYREXIA [None]
  - STRESS [None]
  - TREMOR [None]
  - WEIGHT DECREASED [None]
